FAERS Safety Report 13748600 (Version 1)
Quarter: 2017Q3

REPORT INFORMATION
  Report Type: Spontaneous
  Country: US (occurrence: US)
  Receive Date: 20170712
  Receipt Date: 20170712
  Transmission Date: 20171127
  Serious: Yes (Other)
  Sender: FDA-Public Use
  Company Number: None

PATIENT
  Age: 28 Year
  Sex: Female

DRUGS (1)
  1. SUBOXONE [Suspect]
     Active Substance: BUPRENORPHINE HYDROCHLORIDE\NALOXONE HYDROCHLORIDE
     Indication: DRUG DEPENDENCE
     Route: 060
     Dates: start: 20170118, end: 20170523

REACTIONS (5)
  - Vomiting [None]
  - Constipation [None]
  - Impaired work ability [None]
  - Loss of personal independence in daily activities [None]
  - Nausea [None]

NARRATIVE: CASE EVENT DATE: 20170118
